FAERS Safety Report 18518345 (Version 3)
Quarter: 2020Q4

REPORT INFORMATION
  Report Type: Spontaneous
  Country: JP (occurrence: JP)
  Receive Date: 20201118
  Receipt Date: 20201221
  Transmission Date: 20210114
  Serious: Yes (Death, Hospitalization, Other)
  Sender: FDA-Public Use
  Company Number: JP-BRISTOL-MYERS SQUIBB COMPANY-BMS-2020-010481

PATIENT
  Age: 77 Year
  Sex: Male
  Weight: 46.8 kg

DRUGS (9)
  1. MIYA-BM [Concomitant]
     Active Substance: CLOSTRIDIUM BUTYRICUM SPORES STRAIN M-55
     Indication: GASTRIC CANCER
     Dosage: 1 GRAM, Q8H
     Route: 048
  2. CALONAL [Concomitant]
     Active Substance: ACETAMINOPHEN
     Indication: GASTRIC CANCER
     Dosage: 500 MILLIGRAM, TID
     Route: 048
     Dates: start: 20191212, end: 20200716
  3. DAIKENCHUTO [Concomitant]
     Active Substance: HERBALS
     Indication: GASTRIC CANCER
     Dosage: 2.5 GRAM, Q8H
     Route: 048
     Dates: start: 20191219, end: 20200709
  4. TOUGHMAC E [Suspect]
     Active Substance: AMYLASE\LIPASE\PROTEASE
     Indication: GASTRIC CANCER
     Dosage: 1 GRAM, TID
     Route: 048
     Dates: start: 20190319, end: 20200709
  5. OPDIVO [Suspect]
     Active Substance: NIVOLUMAB
     Dosage: 240 MILLIGRAM, Q2WK
     Route: 041
     Dates: start: 20200227, end: 20200326
  6. MAGNESIUM OXIDE. [Concomitant]
     Active Substance: MAGNESIUM OXIDE
     Indication: GASTRIC CANCER
     Dosage: 330 MILLIGRAM, Q8H
     Route: 048
     Dates: start: 20190326, end: 20200709
  7. OPDIVO [Suspect]
     Active Substance: NIVOLUMAB
     Indication: GASTRIC CANCER
     Dosage: 240 MILLIGRAM, Q2WK
     Route: 041
     Dates: start: 20191226, end: 20200123
  8. PREDNISOLONE. [Concomitant]
     Active Substance: PREDNISOLONE
     Indication: GASTRIC CANCER
     Dosage: 1 MILLIGRAM, QD
     Route: 048
     Dates: start: 20191226, end: 20200213
  9. POLAPREZINC [Concomitant]
     Active Substance: POLAPREZINC
     Indication: GASTRIC CANCER
     Dosage: 75 MILLIGRAM, Q12H
     Route: 048
     Dates: start: 20190320, end: 20200623

REACTIONS (7)
  - Malignant ascites [Fatal]
  - Drug-induced liver injury [Not Recovered/Not Resolved]
  - Cholangitis [Unknown]
  - Pancreatitis [Recovered/Resolved]
  - Malaise [Not Recovered/Not Resolved]
  - Malignant neoplasm progression [Fatal]
  - Interstitial lung disease [Recovered/Resolved]

NARRATIVE: CASE EVENT DATE: 20200124
